FAERS Safety Report 11292201 (Version 2)
Quarter: 2015Q3

REPORT INFORMATION
  Report Type: Spontaneous
  Country: US (occurrence: US)
  Receive Date: 20150722
  Receipt Date: 20150724
  Transmission Date: 20151125
  Serious: No
  Sender: FDA-Public Use
  Company Number: US-009507513-1507USA009300

PATIENT
  Age: 23 Year
  Sex: Female
  Weight: 77.98 kg

DRUGS (3)
  1. NEXPLANON [Suspect]
     Active Substance: ETONOGESTREL
     Indication: CONTRACEPTION
     Dosage: UNK, EVERY 3 YEARS
     Route: 059
     Dates: start: 20140602
  2. VALIUM [Concomitant]
     Active Substance: DIAZEPAM
     Dosage: UNK, PRN
  3. DEPAKOTE [Concomitant]
     Active Substance: DIVALPROEX SODIUM
     Dosage: ONCE DAILY

REACTIONS (7)
  - Weight increased [Unknown]
  - Device dislocation [Not Recovered/Not Resolved]
  - Ovarian cyst [Unknown]
  - Hypoaesthesia [Unknown]
  - Menstruation irregular [Unknown]
  - Device breakage [Not Recovered/Not Resolved]
  - Chromaturia [Unknown]

NARRATIVE: CASE EVENT DATE: 201501
